FAERS Safety Report 9940338 (Version 1)
Quarter: 2014Q1

REPORT INFORMATION
  Report Type: Report from Study
  Country: US (occurrence: US)
  Receive Date: 20140303
  Receipt Date: 20140303
  Transmission Date: 20141002
  Serious: Yes (Other)
  Sender: FDA-Public Use
  Company Number: US-ABBVIE-13P-163-1035041-00

PATIENT
  Age: 51 Year
  Sex: Female

DRUGS (3)
  1. HUMIRA [Suspect]
     Indication: CROHN^S DISEASE
     Dates: start: 200910
  2. FUROSEMIDE [Concomitant]
     Indication: OEDEMA
  3. XYZAL [Concomitant]
     Indication: HYPERSENSITIVITY
     Dosage: DAILY

REACTIONS (11)
  - Impaired healing [Unknown]
  - Injection site haemorrhage [Unknown]
  - Oral herpes [Unknown]
  - Hyperthyroidism [Unknown]
  - Sinus disorder [Recovered/Resolved]
  - Lymphadenopathy [Unknown]
  - Psoriasis [Unknown]
  - Injection site pain [Unknown]
  - Injection site bruising [Unknown]
  - Injection site pain [Unknown]
  - Crohn^s disease [Unknown]
